FAERS Safety Report 5969993-5 (Version None)
Quarter: 2008Q4

REPORT INFORMATION
  Report Type: 
  Country: None (occurrence: None)
  Receive Date: 20081126
  Receipt Date: 20081029
  Transmission Date: 20090506
  Serious: No
  Sender: FDA-Public Use
  Company Number: US-ABBOTT-08P-163-0480273-00

PATIENT
  Sex: Male

DRUGS (5)
  1. SIMCOR [Suspect]
     Indication: BLOOD CHOLESTEROL
     Dosage: 500/20MG DAILY
     Route: 048
     Dates: start: 20080701, end: 20081007
  2. UNNAMED MEDICATION [Concomitant]
     Indication: BLOOD PRESSURE
  3. WATER PILL [Concomitant]
     Indication: DRUG USE FOR UNKNOWN INDICATION
  4. THYROID PILL [Concomitant]
     Indication: DRUG USE FOR UNKNOWN INDICATION
  5. CELECOXIB [Concomitant]
     Indication: ARTHRITIS
     Route: 048

REACTIONS (12)
  - ARTHRALGIA [None]
  - DIZZINESS [None]
  - FATIGUE [None]
  - FLUSHING [None]
  - MUSCLE DISORDER [None]
  - NAUSEA [None]
  - PAIN [None]
  - PRURITUS [None]
  - RASH [None]
  - SKIN BURNING SENSATION [None]
  - SWELLING [None]
  - VISION BLURRED [None]
